FAERS Safety Report 6608417-1 (Version None)
Quarter: 2010Q1

REPORT INFORMATION
  Report Type: 
  Country: None (occurrence: None)
  Receive Date: 20100301
  Receipt Date: 20100223
  Transmission Date: 20100710
  Serious: Yes (Death)
  Sender: FDA-Public Use
  Company Number: JP-ELI_LILLY_AND_COMPANY-JP201002001772

PATIENT
  Age: 65 Year
  Sex: Female

DRUGS (6)
  1. EXENATIDE [Suspect]
     Indication: TYPE 2 DIABETES MELLITUS
     Dosage: 2.0 MG, WEEKLY (1/W)
     Route: 058
     Dates: start: 20100129
  2. GLYCORAN [Concomitant]
     Indication: TYPE 2 DIABETES MELLITUS
     Dosage: 500 MG, DAILY (1/D)
     Route: 048
     Dates: start: 20030101
  3. ACTOS [Concomitant]
     Indication: TYPE 2 DIABETES MELLITUS
     Dosage: 15 MG, DAILY (1/D)
     Route: 048
     Dates: start: 20090101
  4. XALATAN [Concomitant]
     Dosage: UNK, DAILY (1/D)
     Route: 047
  5. CARTEOLOL HYDROCHLORIDE [Concomitant]
     Dosage: UNK, DAILY (1/D)
     Route: 047
  6. HYALURONATE SODIUM [Concomitant]
     Dosage: UNK, 4/D
     Route: 047

REACTIONS (5)
  - BLOOD GLUCOSE INCREASED [None]
  - CARDIO-RESPIRATORY ARREST [None]
  - LOSS OF CONSCIOUSNESS [None]
  - MYDRIASIS [None]
  - PUPILLARY REFLEX IMPAIRED [None]
